FAERS Safety Report 7516508-6 (Version None)
Quarter: 2011Q2

REPORT INFORMATION
  Report Type: 
  Country: None (occurrence: None)
  Receive Date: 20110601
  Receipt Date: 20110524
  Transmission Date: 20111010
  Serious: Yes (Hospitalization)
  Sender: FDA-Public Use
  Company Number: A0928948A

PATIENT
  Age: 51 Year
  Sex: Female

DRUGS (9)
  1. ADVAIR DISKUS 100/50 [Suspect]
     Indication: ASTHMA
     Dosage: 1PUFF TWICE PER DAY
     Route: 055
     Dates: start: 20070101
  2. LISINOPRIL [Concomitant]
  3. GABAPENTIN [Concomitant]
  4. FLEXERIL [Concomitant]
  5. EFFEXOR XR [Concomitant]
  6. ZOCOR [Concomitant]
  7. OXYGEN [Concomitant]
  8. SINGULAIR [Concomitant]
  9. KLONOPIN [Concomitant]

REACTIONS (4)
  - DYSPNOEA [None]
  - DIZZINESS [None]
  - BRONCHOPNEUMONIA [None]
  - NON-CARDIAC CHEST PAIN [None]
